FAERS Safety Report 5743557-0 (Version None)
Quarter: 2008Q2

REPORT INFORMATION
  Report Type: 
  Country: None (occurrence: None)
  Receive Date: 20080520
  Receipt Date: 20080507
  Transmission Date: 20081010
  Serious: Yes (Other)
  Sender: FDA-Public Use
  Company Number: PHHY2008AU07384

PATIENT
  Age: 74 Year
  Sex: Male

DRUGS (13)
  1. FAMCICLOVIR [Suspect]
     Indication: AGRANULOCYTOSIS
     Route: 048
  2. DAPSONE [Suspect]
     Indication: PROPHYLAXIS
     Route: 048
     Dates: start: 19990203, end: 19990205
  3. ROXITHROMYCIN [Suspect]
     Indication: AGRANULOCYTOSIS
     Route: 048
     Dates: start: 19990121, end: 19990211
  4. CALCITRIOL [Concomitant]
  5. ASPARTATE MAGNESIUM [Concomitant]
  6. GLICLAZIDE [Concomitant]
  7. AMPHOTERICIN B [Concomitant]
  8. PREDNISOLONE [Concomitant]
  9. LACTULOSE [Concomitant]
  10. COLOXYL WITH SENNA [Concomitant]
  11. VENTOLIN [Concomitant]
  12. IPRATROPIUM BROMIDE [Concomitant]
  13. PLASMA [Concomitant]

REACTIONS (2)
  - NEPHRITIS INTERSTITIAL [None]
  - RENAL IMPAIRMENT [None]
